FAERS Safety Report 4344687-0 (Version None)
Quarter: 2004Q2

REPORT INFORMATION
  Report Type: 
  Country: None (occurrence: None)
  Receive Date: 20040419
  Receipt Date: 20040415
  Transmission Date: 20050107
  Serious: Yes (Death)
  Sender: FDA-Public Use
  Company Number: 2002-07-1672

PATIENT
  Age: 25 Year
  Sex: Male

DRUGS (6)
  1. ... [Concomitant]
  2. INTRON A [Suspect]
     Indication: HEPATITIS C
     Dosage: 6 MU TIW INTRAMISCULAR
     Route: 030
     Dates: start: 20020226, end: 20020717
  3. REBETOL [Suspect]
     Indication: HEPATITIS C
     Dosage: 800 MG QD ORAL
     Route: 048
     Dates: start: 20020212, end: 20020717
  4. REBETOL [Suspect]
     Indication: HEPATITIS C
     Dosage: 800 MG QD ORAL
     Route: 048
     Dates: start: 20020226, end: 20020717
  5. URSODEOXYCHOLIC ACID [Concomitant]
  6. POLAPREZINC [Concomitant]

REACTIONS (4)
  - CARDIAC FAILURE [None]
  - CEREBRAL HAEMORRHAGE [None]
  - HAEMATOCRIT DECREASED [None]
  - WHITE BLOOD CELL COUNT DECREASED [None]
